FAERS Safety Report 18347052 (Version 1)
Quarter: 2020Q4

REPORT INFORMATION
  Report Type: Report from Study
  Country: None (occurrence: US)
  Receive Date: 20201005
  Receipt Date: 20201005
  Transmission Date: 20210114
  Serious: Yes (Other)
  Sender: FDA-Public Use
  Company Number: US-ABBVIE-20K-163-3525136-00

PATIENT
  Age: 28 Year
  Sex: Female

DRUGS (2)
  1. ORILISSA [Suspect]
     Active Substance: ELAGOLIX SODIUM
     Dosage: DOSE INCREASED
     Route: 048
     Dates: start: 20200811, end: 20200827
  2. ORILISSA [Suspect]
     Active Substance: ELAGOLIX SODIUM
     Indication: PRODUCT USED FOR UNKNOWN INDICATION
     Route: 048
     Dates: start: 20200706, end: 20200810

REACTIONS (8)
  - Endometriosis ablation [Unknown]
  - Abdominal pain [Not Recovered/Not Resolved]
  - Nausea [Not Recovered/Not Resolved]
  - Endometriosis [Unknown]
  - Ovarian cyst [Unknown]
  - Diarrhoea [Not Recovered/Not Resolved]
  - Hot flush [Recovered/Resolved]
  - Hot flush [Recovering/Resolving]

NARRATIVE: CASE EVENT DATE: 2020
